FAERS Safety Report 5946788-X (Version None)
Quarter: 2008Q4

REPORT INFORMATION
  Report Type: 
  Country: None (occurrence: None)
  Receive Date: 20081110
  Receipt Date: 20081030
  Transmission Date: 20090506
  Serious: Yes (Hospitalization, Disabling)
  Sender: FDA-Public Use
  Company Number: US-JNJFOC-20080605042

PATIENT
  Sex: Female

DRUGS (1)
  1. REGRANEX [Suspect]
     Indication: DIABETIC FOOT
     Route: 061

REACTIONS (6)
  - ANAEMIA [None]
  - DIABETIC FOOT [None]
  - DRUG INEFFECTIVE [None]
  - FOOT AMPUTATION [None]
  - POISONING [None]
  - TOE AMPUTATION [None]
